FAERS Safety Report 9552730 (Version 1)
Quarter: 2013Q3

REPORT INFORMATION
  Report Type: Spontaneous
  Country: US (occurrence: US)
  Receive Date: 20130925
  Receipt Date: 20130925
  Transmission Date: 20140515
  Serious: No
  Sender: FDA-Public Use
  Company Number: US-PURDUE-USA-2012-0095961

PATIENT
  Sex: Male

DRUGS (1)
  1. MS CONTIN TABLETS [Suspect]
     Indication: PAIN
     Dosage: 30 MG, QID
     Route: 048
     Dates: start: 201210

REACTIONS (2)
  - Drug effect decreased [Unknown]
  - Expired drug administered [Unknown]
